FAERS Safety Report 21503900 (Version 1)
Quarter: 2022Q4

REPORT INFORMATION
  Report Type: Spontaneous
  Country: US (occurrence: US)
  Receive Date: 20221025
  Receipt Date: 20221025
  Transmission Date: 20230113
  Serious: No
  Sender: FDA-Public Use
  Company Number: US-MYLANLABS-2022M1097773

PATIENT
  Sex: Female
  Weight: 46.72 kg

DRUGS (3)
  1. WIXELA INHUB [Suspect]
     Active Substance: FLUTICASONE PROPIONATE\SALMETEROL XINAFOATE
     Indication: Bronchitis
     Dosage: 100/50 MICROGRAM, QD (ONCE A DAY)
     Route: 055
     Dates: start: 20220901
  2. WIXELA INHUB [Suspect]
     Active Substance: FLUTICASONE PROPIONATE\SALMETEROL XINAFOATE
     Indication: Dyspnoea
  3. ALEGRA [Concomitant]
     Dosage: UNK
     Route: 065

REACTIONS (5)
  - Device issue [Unknown]
  - Tongue thrust [Unknown]
  - Tongue discomfort [Unknown]
  - Salivary hypersecretion [Unknown]
  - Incorrect dose administered by device [Unknown]
